FAERS Safety Report 10038714 (Version 1)
Quarter: 2014Q1

REPORT INFORMATION
  Report Type: Report from Study
  Country: US (occurrence: US)
  Receive Date: 20140326
  Receipt Date: 20140326
  Transmission Date: 20141002
  Serious: Yes (Hospitalization)
  Sender: FDA-Public Use
  Company Number: US-ACTELION-A-US2014-96292

PATIENT
  Age: 39 Year
  Sex: Male

DRUGS (1)
  1. TRACLEER [Suspect]
     Indication: CARDIAC SEPTAL DEFECT
     Dosage: UNK
     Route: 048

REACTIONS (1)
  - Gastrointestinal disorder [Unknown]
